FAERS Safety Report 7968048-8 (Version None)
Quarter: 2011Q4

REPORT INFORMATION
  Report Type: 
  Country: None (occurrence: None)
  Receive Date: 20111209
  Receipt Date: 20111202
  Transmission Date: 20120403
  Serious: Yes (Other)
  Sender: FDA-Public Use
  Company Number: US-ACTELION-A-US2011-45594

PATIENT

DRUGS (3)
  1. REVATIO [Concomitant]
  2. PLAVIX [Concomitant]
  3. TRACLEER [Suspect]
     Indication: PULMONARY ARTERIAL HYPERTENSION
     Dosage: UNK
     Route: 048
     Dates: start: 20100929

REACTIONS (7)
  - ASTHENIA [None]
  - GASTRIC CANCER [None]
  - LYMPHOMA [None]
  - DIZZINESS [None]
  - ANAEMIA [None]
  - CHEMOTHERAPY [None]
  - BREAST MASS [None]
